FAERS Safety Report 4768659-7 (Version None)
Quarter: 2005Q3

REPORT INFORMATION
  Report Type: 
  Country: None (occurrence: None)
  Receive Date: 20050913
  Receipt Date: 20050831
  Transmission Date: 20060218
  Serious: Yes (Other)
  Sender: FDA-Public Use
  Company Number: FRVA20050016

PATIENT
  Age: 42 Year
  Sex: Female

DRUGS (4)
  1. FROVA [Suspect]
     Indication: MIGRAINE
     Dosage: 2.5 MG DAILY PO
     Route: 048
     Dates: start: 20050101, end: 20050802
  2. CYMBALTA [Suspect]
     Indication: DEPRESSION
     Dosage: 90MG DAILY PO
     Route: 048
     Dates: start: 20041201, end: 20050802
  3. PREDNISONE [Concomitant]
  4. NEURONTIN [Concomitant]

REACTIONS (4)
  - HEMIPARESIS [None]
  - LETHARGY [None]
  - MALAISE [None]
  - SEROTONIN SYNDROME [None]
